FAERS Safety Report 4714114-X (Version None)
Quarter: 2005Q2

REPORT INFORMATION
  Report Type: 
  Country: None (occurrence: None)
  Receive Date: 20050630
  Receipt Date: 20041119
  Transmission Date: 20051028
  Serious: Yes (Death)
  Sender: FDA-Public Use
  Company Number: 386366

PATIENT
  Weight: 0.2 kg

DRUGS (2)
  1. COPEGUS [Suspect]
     Dates: start: 20040315
  2. PEG-INTERFERON ALFA NOS (PEG-INTERFERON ALFA NOS) [Suspect]
     Dates: start: 20040315

REACTIONS (3)
  - DEATH NEONATAL [None]
  - PREGNANCY OF PARTNER [None]
  - PREMATURE BABY [None]
